FAERS Safety Report 8924174 (Version 1)
Quarter: 2012Q4

REPORT INFORMATION
  Report Type: Spontaneous
  Country: US (occurrence: None)
  Receive Date: 20121121
  Receipt Date: 20121121
  Transmission Date: 20130627
  Serious: Yes (Hospitalization)
  Sender: FDA-Public Use
  Company Number: None

PATIENT
  Sex: Male
  Weight: 64.5 kg

DRUGS (2)
  1. CISPLATIN [Suspect]
  2. ETOPOSIDE [Suspect]

REACTIONS (8)
  - Fatigue [None]
  - Pneumonia [None]
  - Atrial fibrillation [None]
  - Renal failure acute [None]
  - Dehydration [None]
  - Toxicity to various agents [None]
  - Pancytopenia [None]
  - Deep vein thrombosis [None]
